FAERS Safety Report 11176184 (Version 1)
Quarter: 2015Q2

REPORT INFORMATION
  Report Type: Spontaneous
  Country: US (occurrence: None)
  Receive Date: 20150608
  Receipt Date: 20150608
  Transmission Date: 20150821
  Serious: No
  Sender: FDA-Public Use
  Company Number: None

PATIENT
  Age: 28 Year
  Sex: Female
  Weight: 85.73 kg

DRUGS (5)
  1. ALBUTEROL. [Concomitant]
     Active Substance: ALBUTEROL
  2. FLONASE [Concomitant]
     Active Substance: FLUTICASONE PROPIONATE
  3. MIRENA [Suspect]
     Active Substance: LEVONORGESTREL
     Indication: CONTRACEPTION
     Route: 067
     Dates: start: 20111031, end: 20150604
  4. VITAMIN B12 [Concomitant]
     Active Substance: CYANOCOBALAMIN
  5. RETIN-A [Concomitant]
     Active Substance: TRETINOIN

REACTIONS (14)
  - Haemorrhage [None]
  - Micturition urgency [None]
  - Depression [None]
  - Hair growth abnormal [None]
  - Premenstrual syndrome [None]
  - Constipation [None]
  - Alopecia [None]
  - Acne [None]
  - Madarosis [None]
  - Migraine [None]
  - Amenorrhoea [None]
  - Weight increased [None]
  - Flatulence [None]
  - Fatigue [None]

NARRATIVE: CASE EVENT DATE: 20150604
